FAERS Safety Report 10202288 (Version 1)
Quarter: 2014Q2

REPORT INFORMATION
  Report Type: Spontaneous
  Country: SE (occurrence: SE)
  Receive Date: 20140528
  Receipt Date: 20140528
  Transmission Date: 20141212
  Serious: Yes (Hospitalization, Other)
  Sender: FDA-Public Use
  Company Number: SE-ACTAVIS-2014-11386

PATIENT
  Age: 60 Year
  Sex: Female
  Weight: 77 kg

DRUGS (16)
  1. VALACYCLOVIR HYDROCHLORIDE (UNKNOWN) [Suspect]
     Indication: HERPES VIRUS INFECTION
     Dosage: 6 G, DAILY
     Route: 048
  2. ACYCLOVIR (UNKNOWN) [Suspect]
     Indication: HERPES VIRUS INFECTION
     Dosage: 700 MG, SINGLE
     Route: 042
  3. AMITRIPTYLINE [Concomitant]
     Indication: PRODUCT USED FOR UNKNOWN INDICATION
     Dosage: 50 MG, DAILY
     Route: 065
  4. CALCIUM CARBONATE W/COLECALCIFEROL [Concomitant]
     Indication: PRODUCT USED FOR UNKNOWN INDICATION
     Dosage: 1X2
     Route: 065
  5. ENALAPRIL [Concomitant]
     Indication: PRODUCT USED FOR UNKNOWN INDICATION
     Dosage: 10 MG, DAILY
     Route: 065
  6. GABAPENTIN [Concomitant]
     Indication: PRODUCT USED FOR UNKNOWN INDICATION
     Dosage: 600 MG, TID
     Route: 065
  7. METOPROLOL [Concomitant]
     Indication: PRODUCT USED FOR UNKNOWN INDICATION
     Dosage: 100 MG, DAILY
     Route: 065
  8. BACLOFEN [Concomitant]
     Indication: PRODUCT USED FOR UNKNOWN INDICATION
     Dosage: 10 MG 1+2+1
     Route: 065
  9. METHENAMINE [Concomitant]
     Indication: PRODUCT USED FOR UNKNOWN INDICATION
     Dosage: 1 G, TID
     Route: 065
  10. FUROSEMIDE [Concomitant]
     Indication: PRODUCT USED FOR UNKNOWN INDICATION
     Dosage: 80 MG, UNK
     Route: 065
  11. VENLAFAXINE [Concomitant]
     Indication: PRODUCT USED FOR UNKNOWN INDICATION
     Dosage: UNK 1X2
  12. MONTELUKAST [Concomitant]
     Indication: PRODUCT USED FOR UNKNOWN INDICATION
     Dosage: UNKNOWN
     Route: 065
  13. SALMETEROL/FLUTICASONPROPIONAAT [Concomitant]
     Indication: PRODUCT USED FOR UNKNOWN INDICATION
     Dosage: UNKNOWN
     Route: 065
  14. AMPICILLIN [Concomitant]
     Indication: MENINGITIS BACTERIAL
     Dosage: UNKNOWN
     Route: 042
  15. BETAMETHASONE [Concomitant]
     Indication: MENINGITIS BACTERIAL
     Dosage: UNKNOWN
     Route: 042
  16. CEFOTAXIME [Concomitant]
     Indication: MENINGITIS BACTERIAL
     Dosage: UNKNOWN
     Route: 065

REACTIONS (11)
  - Somnolence [Recovered/Resolved]
  - Musculoskeletal stiffness [Recovered/Resolved]
  - Muscular weakness [Recovered/Resolved]
  - Nausea [Recovering/Resolving]
  - Vomiting [Recovered/Resolved]
  - Headache [Recovered/Resolved]
  - Aphasia [Recovered/Resolved]
  - Dysstasia [Recovered/Resolved]
  - Bladder dysfunction [Recovered/Resolved]
  - Blood creatinine increased [Recovered/Resolved]
  - Antiviral drug level above therapeutic [Recovered/Resolved]
